FAERS Safety Report 7477513-1 (Version None)
Quarter: 2011Q2

REPORT INFORMATION
  Report Type: 
  Country: None (occurrence: None)
  Receive Date: 20110511
  Receipt Date: 20110511
  Transmission Date: 20111010
  Serious: Yes (Hospitalization)
  Sender: FDA-Public Use
  Company Number: None

PATIENT
  Age: 60 Year
  Sex: Female
  Weight: 49.8957 kg

DRUGS (2)
  1. LEVAQUIN [Suspect]
     Indication: INFECTION
     Dosage: 1 PILL ONCE A DAY, ONE DOSE GIVEN AT HOME 4/9/11 ONE DOSE GIVEN AT HOME 4/10/11
     Dates: start: 20100410
  2. LEVAQUIN [Suspect]
     Indication: INFECTION
     Dosage: 1 PILL ONCE A DAY, ONE DOSE GIVEN AT HOME 4/9/11 ONE DOSE GIVEN AT HOME 4/10/11
     Dates: start: 20110409

REACTIONS (4)
  - JOINT SWELLING [None]
  - DYSSTASIA [None]
  - MOVEMENT DISORDER [None]
  - ARTHRALGIA [None]
